FAERS Safety Report 4637708-9 (Version None)
Quarter: 2005Q2

REPORT INFORMATION
  Report Type: 
  Country: None (occurrence: None)
  Receive Date: 20050418
  Receipt Date: 20050406
  Transmission Date: 20051028
  Serious: Yes (Life-Threatening, Hospitalization)
  Sender: FDA-Public Use
  Company Number: PR-MERCK-0504USA00881

PATIENT
  Age: 50 Year
  Sex: Female

DRUGS (3)
  1. CRIXIVAN [Suspect]
     Route: 048
     Dates: start: 20050218, end: 20050301
  2. EPIVIR [Concomitant]
     Route: 065
  3. RETROVIR [Concomitant]
     Route: 065

REACTIONS (2)
  - ANURIA [None]
  - NEPHROLITHIASIS [None]
